FAERS Safety Report 10499633 (Version 1)
Quarter: 2014Q4

REPORT INFORMATION
  Report Type: Spontaneous
  Country: US (occurrence: US)
  Receive Date: 20141006
  Receipt Date: 20141006
  Transmission Date: 20150528
  Serious: No
  Sender: FDA-Public Use
  Company Number: US-AMGEN INC.-USASP2014041588

PATIENT
  Age: 77 Year
  Sex: Female

DRUGS (15)
  1. CALCIUM [Concomitant]
     Active Substance: CALCIUM
  2. ELOCON [Concomitant]
     Active Substance: MOMETASONE FUROATE
  3. VICODIN [Concomitant]
     Active Substance: ACETAMINOPHEN\HYDROCODONE BITARTRATE
  4. VITAMIN D                          /00107901/ [Concomitant]
     Active Substance: ERGOCALCIFEROL
  5. LIDODERM [Concomitant]
     Active Substance: LIDOCAINE
  6. MOBIC [Concomitant]
     Active Substance: MELOXICAM
  7. NORVASC [Concomitant]
     Active Substance: AMLODIPINE BESYLATE
  8. LOVAZA [Concomitant]
     Active Substance: OMEGA-3-ACID ETHYL ESTERS
  9. LYRICA [Concomitant]
     Active Substance: PREGABALIN
  10. PROLIA [Suspect]
     Active Substance: DENOSUMAB
     Indication: OSTEOPOROSIS POSTMENOPAUSAL
     Dosage: UNK
     Route: 065
     Dates: start: 20140410
  11. NEXIUM [Concomitant]
     Active Substance: ESOMEPRAZOLE MAGNESIUM
  12. PREMARIN [Concomitant]
     Active Substance: ESTROGENS, CONJUGATED
  13. XANAX [Concomitant]
     Active Substance: ALPRAZOLAM
  14. ZANTAC [Concomitant]
     Active Substance: RANITIDINE HYDROCHLORIDE
  15. DIOVAN [Concomitant]
     Active Substance: VALSARTAN

REACTIONS (2)
  - Gait disturbance [Unknown]
  - Bone pain [Unknown]

NARRATIVE: CASE EVENT DATE: 20140527
